FAERS Safety Report 17419285 (Version 2)
Quarter: 2021Q3

REPORT INFORMATION
  Report Type: Spontaneous
  Country: US (occurrence: US)
  Receive Date: 20200214
  Receipt Date: 20210930
  Transmission Date: 20211014
  Serious: Yes (Disabling, Other)
  Sender: FDA-Public Use
  Company Number: US-TEVA-2020-US-1186677

PATIENT
  Age: 53 Year
  Sex: Female
  Weight: 106.5 kg

DRUGS (17)
  1. FLUTICASONE. [Concomitant]
     Active Substance: FLUTICASONE
     Dates: start: 2002
  2. MONTELUKAST [Concomitant]
     Active Substance: MONTELUKAST SODIUM
     Dates: start: 2002
  3. DOCETAXEL WINTHROP [Suspect]
     Active Substance: DOCETAXEL
     Indication: INVASIVE BREAST CARCINOMA
     Dosage: NO OF CYCLES: 06, EVERY THREE WEEKS, PERIPHERAL IV
     Dates: start: 20150521, end: 20150903
  4. ALOXI [Concomitant]
     Active Substance: PALONOSETRON HYDROCHLORIDE
     Route: 042
     Dates: start: 20150521, end: 20150903
  5. DOCETAXEL SAGENT [Suspect]
     Active Substance: DOCETAXEL
     Indication: INVASIVE BREAST CARCINOMA
     Dosage: NO OF CYCLES: 06, EVERY THREE WEEKS, PERIPHERAL IV
     Dates: start: 20150521, end: 20150903
  6. HERCEPTIN [Suspect]
     Active Substance: TRASTUZUMAB
     Indication: INVASIVE BREAST CARCINOMA
     Dosage: NO OF CYCLES: 06, EVERY THREE WEEKS, PERIPHERAL IV
     Dates: start: 20150521, end: 20150903
  7. ADVAIR HFA [Concomitant]
     Active Substance: FLUTICASONE PROPIONATE\SALMETEROL XINAFOATE
     Dates: start: 2002
  8. DOCETAXEL SANOFI?AVENTIS [Suspect]
     Active Substance: DOCETAXEL
     Indication: INVASIVE BREAST CARCINOMA
     Dosage: NO OF CYCLES: 06, EVERY THREE WEEKS, PERIPHERAL IV
     Dates: start: 20150521, end: 20150903
  9. DOCETAXEL MCKESSON [Suspect]
     Active Substance: DOCETAXEL
     Indication: INVASIVE BREAST CARCINOMA
     Dosage: NO OF CYCLES: 06, EVERY THREE WEEKS, PERIPHERAL IV
     Dates: start: 20150521, end: 20150903
  10. SYNTHROID [Concomitant]
     Active Substance: LEVOTHYROXINE SODIUM
     Dosage: ONGOING
     Dates: start: 2003
  11. PROZAC [Concomitant]
     Active Substance: FLUOXETINE HYDROCHLORIDE
     Dates: start: 2001
  12. VENLAFAXINE [Concomitant]
     Active Substance: VENLAFAXINE HYDROCHLORIDE
     Dates: start: 2002
  13. DECADRON [Concomitant]
     Active Substance: DEXAMETHASONE
     Route: 042
     Dates: start: 20150521, end: 20150903
  14. CARBOPLATIN. [Suspect]
     Active Substance: CARBOPLATIN
     Indication: INVASIVE BREAST CARCINOMA
     Dosage: NO OF CYCLES: 06, EVERY THREE WEEKS, PERIPHERAL IV
     Dates: start: 20150521, end: 20150903
  15. DOCETAXEL HOSPIRA [Suspect]
     Active Substance: DOCETAXEL
     Indication: INVASIVE BREAST CARCINOMA
     Dosage: NO OF CYCLES: 06, EVERY THREE WEEKS, PERIPHERAL IV
     Dates: start: 20150521, end: 20150903
  16. DOCETAXEL SANDOZ [Suspect]
     Active Substance: DOCETAXEL
     Indication: INVASIVE BREAST CARCINOMA
     Dosage: NO OF CYCLES: 06, EVERY THREE WEEKS, PERIPHERAL IV
     Dates: start: 20150521, end: 20150903
  17. DOCETAXEL SANOFI?AVENTIS [Suspect]
     Active Substance: DOCETAXEL
     Dosage: NO OF CYCLES: 06, EVERY THREE WEEKS, PERIPHERAL IV
     Dates: start: 20150521, end: 20150903

REACTIONS (11)
  - Madarosis [Not Recovered/Not Resolved]
  - Constipation [Unknown]
  - Fatigue [Not Recovered/Not Resolved]
  - Alopecia areata [Not Recovered/Not Resolved]
  - Hair colour changes [Not Recovered/Not Resolved]
  - Rash maculo-papular [Recovered/Resolved]
  - Flushing [Recovering/Resolving]
  - Dyspnoea [Recovering/Resolving]
  - Hair texture abnormal [Not Recovered/Not Resolved]
  - Cardiac valve disease [Unknown]
  - Neuropathy peripheral [Recovered/Resolved]

NARRATIVE: CASE EVENT DATE: 2015
